FAERS Safety Report 6282860-5 (Version None)
Quarter: 2009Q3

REPORT INFORMATION
  Report Type: 
  Country: None (occurrence: None)
  Receive Date: 20090722
  Receipt Date: 20090710
  Transmission Date: 20100115
  Serious: Yes (Disabling)
  Sender: FDA-Public Use
  Company Number: 322128

PATIENT
  Sex: Male

DRUGS (1)
  1. BUPIVACAINE HCL [Suspect]
     Indication: ANALGESIA
     Dosage: CONTINUOUS ^FOR UP TO 48 HOURS OR MORE^,
     Dates: start: 20060101

REACTIONS (4)
  - ARTHRALGIA [None]
  - CATHETER RELATED COMPLICATION [None]
  - CHONDROLYSIS [None]
  - MUSCULOSKELETAL DISORDER [None]
